FAERS Safety Report 13747530 (Version 2)
Quarter: 2017Q4

REPORT INFORMATION
  Report Type: Spontaneous
  Country: US (occurrence: US)
  Receive Date: 20170712
  Receipt Date: 20171025
  Transmission Date: 20180320
  Serious: Yes (Other)
  Sender: FDA-Public Use
  Company Number: US-CELGENEUS-USA-20170702194

PATIENT
  Sex: Female
  Weight: 69.01 kg

DRUGS (1)
  1. REVLIMID [Suspect]
     Active Substance: LENALIDOMIDE
     Indication: PLASMA CELL MYELOMA
     Dosage: 25 MILLIGRAM
     Route: 048
     Dates: start: 20170621

REACTIONS (2)
  - Hypersensitivity [Recovered/Resolved]
  - Rash [Unknown]

NARRATIVE: CASE EVENT DATE: 2017
